FAERS Safety Report 25385172 (Version 1)
Quarter: 2025Q2

REPORT INFORMATION
  Report Type: Spontaneous
  Country: US (occurrence: None)
  Receive Date: 20250531
  Receipt Date: 20250531
  Transmission Date: 20250717
  Serious: Yes (Hospitalization)
  Sender: FDA-CTU
  Company Number: None

PATIENT
  Age: 40 Year
  Sex: Female

DRUGS (1)
  1. AMJEVITA [Suspect]
     Active Substance: ADALIMUMAB-ATTO
     Indication: Product used for unknown indication
     Dosage: FREQUENCY : EVERY OTHER WEEK;?
     Dates: start: 20250131

REACTIONS (16)
  - Portal tract inflammation [None]
  - Condition aggravated [None]
  - Haematochezia [None]
  - Fatigue [None]
  - Diarrhoea [None]
  - Pain [None]
  - Sleep disorder [None]
  - Musculoskeletal stiffness [None]
  - Constipation [None]
  - Loss of consciousness [None]
  - Tachycardia [None]
  - Body temperature increased [None]
  - Hyperhidrosis [None]
  - Paraesthesia [None]
  - Tremor [None]
  - Feeling cold [None]
